FAERS Safety Report 4279026-7 (Version None)
Quarter: 2004Q1

REPORT INFORMATION
  Report Type: 
  Country: None (occurrence: None)
  Receive Date: 20040122
  Receipt Date: 20031223
  Transmission Date: 20041129
  Serious: Yes (Other)
  Sender: FDA-Public Use
  Company Number: USA031151682

PATIENT
  Age: 73 Year
  Sex: Female

DRUGS (6)
  1. EVISTA [Suspect]
     Indication: OSTEOPOROSIS
     Dosage: 60 MG/DAY
     Dates: start: 19980101
  2. FOSAMAX [Concomitant]
  3. LOPRESSOR [Concomitant]
  4. MAXZIDE [Concomitant]
  5. PREDNISONE [Concomitant]
  6. CALTRATE (CALCIUM CARBONATE) [Concomitant]

REACTIONS (4)
  - CHOLECYSTECTOMY [None]
  - GASTRIC DISORDER [None]
  - MUSCLE CRAMP [None]
  - SPINAL FRACTURE [None]
